FAERS Safety Report 18438854 (Version 1)
Quarter: 2020Q4

REPORT INFORMATION
  Report Type: Other
  Country: JP (occurrence: JP)
  Receive Date: 20201029
  Receipt Date: 20201029
  Transmission Date: 20210114
  Serious: Yes (Other)
  Sender: FDA-Public Use
  Company Number: JP-ROCHE-2700676

PATIENT

DRUGS (5)
  1. AZITHROMYCIN ANHYDROUS. [Concomitant]
     Active Substance: AZITHROMYCIN ANHYDROUS
  2. NAFAMOSTAT [Concomitant]
     Active Substance: NAFAMOSTAT
  3. FAVIPIRAVIR [Concomitant]
     Active Substance: FAVIPIRAVIR
  4. TOCILIZUMAB. [Suspect]
     Active Substance: TOCILIZUMAB
     Indication: COVID-19
     Route: 042
  5. TOCILIZUMAB. [Suspect]
     Active Substance: TOCILIZUMAB
     Indication: ACUTE RESPIRATORY DISTRESS SYNDROME

REACTIONS (4)
  - Intentional product use issue [Unknown]
  - Off label use [Unknown]
  - Infusion related reaction [Unknown]
  - Bacteraemia [Unknown]
